FAERS Safety Report 14466142 (Version 1)
Quarter: 2018Q1

REPORT INFORMATION
  Report Type: Spontaneous
  Country: US (occurrence: US)
  Receive Date: 20180131
  Receipt Date: 20180131
  Transmission Date: 20180509
  Serious: Yes (Other)
  Sender: FDA-Public Use
  Company Number: US-ENDO PHARMACEUTICALS INC-2017-004801

PATIENT
  Sex: Male
  Weight: 60.77 kg

DRUGS (4)
  1. ATORVASTATIN [Concomitant]
     Active Substance: ATORVASTATIN
     Indication: BLOOD CHOLESTEROL INCREASED
  2. NIFEDIPINE. [Suspect]
     Active Substance: NIFEDIPINE
     Indication: ANGINA PECTORIS
     Dosage: 1 DF, DAILY
     Route: 048
     Dates: start: 2017, end: 2017
  3. NIFEDIPINE. [Suspect]
     Active Substance: NIFEDIPINE
     Indication: HYPERTENSION
     Dosage: 1 DF, DAILY
     Route: 048
     Dates: start: 201703, end: 2017
  4. NIFEDIPINE. [Suspect]
     Active Substance: NIFEDIPINE
     Dosage: 1 DF, DAILY
     Route: 048
     Dates: start: 2017, end: 201707

REACTIONS (6)
  - Headache [Recovered/Resolved]
  - Constipation [Unknown]
  - Erythema [Recovered/Resolved]
  - Flushing [Recovered/Resolved]
  - Off label use [Not Recovered/Not Resolved]
  - Burning sensation [Recovered/Resolved]

NARRATIVE: CASE EVENT DATE: 2017
